FAERS Safety Report 15946761 (Version 1)
Quarter: 2019Q1

REPORT INFORMATION
  Report Type: Spontaneous
  Country: US (occurrence: US)
  Receive Date: 20190211
  Receipt Date: 20190211
  Transmission Date: 20190417
  Serious: No
  Sender: FDA-Public Use
  Company Number: US-PFIZER INC-2019028339

PATIENT
  Age: 15 Year
  Sex: Male

DRUGS (2)
  1. GENOTROPIN [Suspect]
     Active Substance: SOMATROPIN
     Dosage: DAILY (ALTERNATING DOES OF 2.6MG AND 2.8MG, 7 DAYS A WEEK)
  2. GENOTROPIN [Suspect]
     Active Substance: SOMATROPIN
     Indication: CRANIOPHARYNGIOMA
     Dosage: 2.7 MG, DAILY

REACTIONS (5)
  - Product use in unapproved indication [Unknown]
  - Product prescribing error [Unknown]
  - Insulin-like growth factor decreased [Unknown]
  - Neutrophil count decreased [Unknown]
  - Bone densitometry [Unknown]

NARRATIVE: CASE EVENT DATE: 20170420
